FAERS Safety Report 4887520-0 (Version None)
Quarter: 2006Q1

REPORT INFORMATION
  Report Type: 
  Country: None (occurrence: None)
  Receive Date: 20060123
  Receipt Date: 20050829
  Transmission Date: 20060701
  Serious: Yes (Hospitalization)
  Sender: FDA-Public Use
  Company Number: 2005AP04610

PATIENT
  Age: 21644 Day
  Sex: Male
  Weight: 52 kg

DRUGS (3)
  1. IRESSA [Suspect]
     Indication: SQUAMOUS CELL CARCINOMA
     Route: 048
     Dates: start: 20041129, end: 20050826
  2. IRESSA [Suspect]
     Indication: OROPHARYNGEAL CANCER STAGE UNSPECIFIED
     Route: 048
     Dates: start: 20041129, end: 20050826
  3. RADIOTHERAPY [Suspect]
     Dosage: 70 GY
     Dates: start: 20041129, end: 20050118

REACTIONS (1)
  - ANAEMIA [None]
